FAERS Safety Report 4801665-2 (Version None)
Quarter: 2005Q4

REPORT INFORMATION
  Report Type: 
  Country: None (occurrence: None)
  Receive Date: 20051018
  Receipt Date: 20051003
  Transmission Date: 20060501
  Serious: Yes (Hospitalization)
  Sender: FDA-Public Use
  Company Number: FR-GILEAD-2005-0008771

PATIENT
  Sex: Male

DRUGS (6)
  1. VIREAD [Suspect]
     Indication: HIV INFECTION
     Route: 048
     Dates: start: 20050218, end: 20050718
  2. PEGASYS [Suspect]
     Indication: HEPATITIS B
     Route: 058
     Dates: start: 20050218, end: 20050606
  3. RETROVIR [Concomitant]
     Indication: HIV INFECTION
     Route: 048
     Dates: start: 19970701
  4. CRIXIVAN [Concomitant]
     Indication: HIV INFECTION
     Route: 048
     Dates: start: 19970701
  5. EPIVIR [Concomitant]
     Indication: HIV INFECTION
     Route: 048
     Dates: start: 19970701, end: 20050201
  6. EPIVIR [Concomitant]
     Route: 048
     Dates: start: 20050701

REACTIONS (3)
  - ANAEMIA [None]
  - ERYTHROPENIA [None]
  - NEUTROPENIA [None]
